FAERS Safety Report 24919185 (Version 1)
Quarter: 2025Q1

REPORT INFORMATION
  Report Type: Spontaneous
  Country: DE (occurrence: DE)
  Receive Date: 20250204
  Receipt Date: 20250204
  Transmission Date: 20250409
  Serious: Yes (Other)
  Sender: AUROBINDO
  Company Number: DE-BoehringerIngelheim-2018-BI-005980

PATIENT

DRUGS (3)
  1. DOCETAXEL [Suspect]
     Active Substance: DOCETAXEL
     Indication: Product used for unknown indication
     Route: 065
     Dates: start: 201412, end: 201503
  2. NINTEDANIB [Suspect]
     Active Substance: NINTEDANIB
     Indication: EGFR gene mutation
     Route: 065
     Dates: start: 201412, end: 201503
  3. NINTEDANIB [Suspect]
     Active Substance: NINTEDANIB
     Indication: Lung adenocarcinoma
     Route: 065
     Dates: start: 201505

REACTIONS (4)
  - Metastases to liver [Unknown]
  - Lung neoplasm malignant [Unknown]
  - Metastases to central nervous system [Unknown]
  - Malignant neoplasm progression [Unknown]
